FAERS Safety Report 24199480 (Version 2)
Quarter: 2024Q3

REPORT INFORMATION
  Report Type: Spontaneous
  Country: JP (occurrence: JP)
  Receive Date: 20240812
  Receipt Date: 20240829
  Transmission Date: 20241017
  Serious: Yes (Other)
  Sender: ASTELLAS
  Company Number: JP-ASTELLAS-2024JP005852

PATIENT
  Age: 96 Year
  Sex: Male

DRUGS (7)
  1. MIRABEGRON [Suspect]
     Active Substance: MIRABEGRON
     Indication: Hypertonic bladder
     Dosage: AFTER DINNER, 21:00
     Route: 048
     Dates: start: 20240802
  2. MIRABEGRON [Suspect]
     Active Substance: MIRABEGRON
     Dosage: ABOUT AN HOUR AFTER DINNER
     Route: 048
  3. NAFTOPIDIL [Concomitant]
     Active Substance: NAFTOPIDIL
     Indication: Urinary incontinence
     Dosage: UNK UNK, TWICE DAILY
     Route: 048
  4. HERBALS [Concomitant]
     Active Substance: HERBALS
     Indication: Urinary incontinence
     Dosage: UNK UNK, OTHER (EVERY DAY)
     Route: 048
  5. SOLANAX [Concomitant]
     Active Substance: ALPRAZOLAM
     Indication: Product used for unknown indication
     Dosage: HALF TABLET, AROUND 10:00 BEFORE SLEEP, SOMETIMES WITHOUT TAKING
     Route: 048
  6. SOLANAX [Concomitant]
     Active Substance: ALPRAZOLAM
     Dosage: AROUND 10:00 BEFORE SLEEP, SOMETIMES WITHOUT TAKING
     Route: 048
  7. ALPRAZOLAM [Concomitant]
     Active Substance: ALPRAZOLAM
     Indication: Product used for unknown indication
     Dosage: ABOUT HALF MONTH
     Route: 065

REACTIONS (18)
  - Pneumonia [Unknown]
  - Diabetes mellitus [Unknown]
  - Fatigue [Unknown]
  - Urine abnormality [Unknown]
  - Urethritis [Unknown]
  - Micturition disorder [Unknown]
  - Micturition urgency [Recovering/Resolving]
  - Lung disorder [Unknown]
  - Blood triglycerides abnormal [Unknown]
  - Blood cholesterol abnormal [Unknown]
  - Urinary incontinence [Recovering/Resolving]
  - Micturition urgency [Unknown]
  - Abdominal discomfort [Unknown]
  - Visceroptosis [Unknown]
  - Constipation [Unknown]
  - Anal incontinence [Unknown]
  - Faeces soft [Unknown]
  - Change of bowel habit [Unknown]
